FAERS Safety Report 7331080-1 (Version None)
Quarter: 2011Q1

REPORT INFORMATION
  Report Type: 
  Country: None (occurrence: None)
  Receive Date: 20110228
  Receipt Date: 20110228
  Transmission Date: 20110831
  Serious: Yes (Other)
  Sender: FDA-Public Use
  Company Number: None

PATIENT
  Age: 83 Year
  Sex: Male
  Weight: 95.2554 kg

DRUGS (7)
  1. BENICAR [Concomitant]
  2. VITAMIN D [Concomitant]
  3. PROSCAR [Concomitant]
  4. ASPIRIN [Concomitant]
  5. TRIAMTERENE [Concomitant]
  6. CALCIUM [Concomitant]
  7. ACTOS [Suspect]
     Indication: TYPE 2 DIABETES MELLITUS
     Dosage: 15 MG ONE DAILY MOUTH
     Route: 048
     Dates: start: 20050101, end: 20100401

REACTIONS (8)
  - MOVEMENT DISORDER [None]
  - GRIP STRENGTH DECREASED [None]
  - DYSGRAPHIA [None]
  - MUSCLE ATROPHY [None]
  - OEDEMA PERIPHERAL [None]
  - ABASIA [None]
  - SECRETION DISCHARGE [None]
  - PAIN IN EXTREMITY [None]
